FAERS Safety Report 23792816 (Version 1)
Quarter: 2024Q2

REPORT INFORMATION
  Report Type: Spontaneous
  Country: US (occurrence: US)
  Receive Date: 20240429
  Receipt Date: 20240429
  Transmission Date: 20240716
  Serious: Yes (Other)
  Sender: FDA-Public Use
  Company Number: US-009507513-2404USA010503

PATIENT
  Age: 79 Year
  Sex: Male

DRUGS (1)
  1. KEYTRUDA [Suspect]
     Active Substance: PEMBROLIZUMAB
     Indication: Lung neoplasm malignant
     Dosage: UNK, Q3W
     Route: 042
     Dates: start: 202402, end: 202403

REACTIONS (2)
  - Diarrhoea [Unknown]
  - Chemotherapy [Unknown]

NARRATIVE: CASE EVENT DATE: 20240101
